FAERS Safety Report 6560871-X (Version None)
Quarter: 2010Q1

REPORT INFORMATION
  Report Type: 
  Country: None (occurrence: None)
  Receive Date: 20100129
  Receipt Date: 20090922
  Transmission Date: 20100710
  Serious: No
  Sender: FDA-Public Use
  Company Number: US-ABBOTT-09P-163-0599481-00

PATIENT
  Sex: Female
  Weight: 65.83 kg

DRUGS (7)
  1. HUMIRA [Suspect]
     Indication: CROHN'S DISEASE
     Route: 058
  2. VITAMIN D [Concomitant]
     Indication: DRUG USE FOR UNKNOWN INDICATION
  3. TOPAMAX [Concomitant]
     Indication: HEADACHE
  4. CELEXA [Concomitant]
     Indication: DEPRESSION
  5. MELATONIN [Concomitant]
     Indication: SLEEP DISORDER THERAPY
  6. TRAMADOL [Concomitant]
     Indication: ABDOMINAL PAIN UPPER
  7. UNKNOWN STEROIDS [Concomitant]
     Indication: CROHN'S DISEASE
     Dates: start: 20090701

REACTIONS (18)
  - ABDOMINAL DISTENSION [None]
  - ACROCHORDON [None]
  - ASTHENIA [None]
  - CONFUSIONAL STATE [None]
  - CROHN'S DISEASE [None]
  - DIARRHOEA [None]
  - DIZZINESS [None]
  - FATIGUE [None]
  - HEADACHE [None]
  - INFECTION [None]
  - INFLUENZA [None]
  - INSOMNIA [None]
  - PAIN [None]
  - POLLAKIURIA [None]
  - PYREXIA [None]
  - SOMNOLENCE [None]
  - TREMOR [None]
  - VISION BLURRED [None]
